FAERS Safety Report 5530315-5 (Version None)
Quarter: 2007Q4

REPORT INFORMATION
  Report Type: 
  Country: None (occurrence: None)
  Receive Date: 20071130
  Receipt Date: 20070405
  Transmission Date: 20080405
  Serious: No
  Sender: FDA-Public Use
  Company Number: A0646453A

PATIENT
  Sex: Female

DRUGS (2)
  1. AUGMENTIN '250' [Suspect]
     Route: 048
  2. BYETTA [Suspect]
     Indication: DRUG USE FOR UNKNOWN INDICATION
     Dosage: 10MCG UNKNOWN
     Route: 058

REACTIONS (2)
  - DIZZINESS [None]
  - SINUSITIS [None]
